FAERS Safety Report 4889487-8 (Version None)
Quarter: 2006Q1

REPORT INFORMATION
  Report Type: 
  Country: None (occurrence: None)
  Receive Date: 20060124
  Receipt Date: 20060110
  Transmission Date: 20060701
  Serious: Yes (Death, Other)
  Sender: FDA-Public Use
  Company Number: US-KINGPHARMUSA00001-K200600023

PATIENT
  Age: 83 Year
  Sex: Female

DRUGS (3)
  1. ALTACE [Suspect]
     Indication: HYPERTENSION
     Dosage: 5 MG, QD
     Dates: start: 20050718
  2. ASPIRIN [Suspect]
     Dosage: 100 MG, UNK
     Dates: start: 20050718
  3. FELODIPINE [Suspect]
     Indication: HYPERTENSION
     Dosage: 5 MG, QD
     Route: 065
     Dates: start: 20050718

REACTIONS (2)
  - BLOOD GLUCOSE INCREASED [None]
  - DEATH [None]
